FAERS Safety Report 24572914 (Version 1)
Quarter: 2024Q4

REPORT INFORMATION
  Report Type: Report from Study
  Country: US (occurrence: US)
  Receive Date: 20241101
  Receipt Date: 20241101
  Transmission Date: 20250114
  Serious: Yes (Hospitalization)
  Sender: ARGENX BVBA
  Company Number: US-ARGENX-2024-ARGX-US009441

PATIENT

DRUGS (1)
  1. VYVGART HYTRULO [Suspect]
     Active Substance: EFGARTIGIMOD ALFA\HYALURONIDASE-QVFC
     Indication: Chronic inflammatory demyelinating polyradiculoneuropathy
     Dosage: UNK
     Route: 058
     Dates: start: 20241023

REACTIONS (4)
  - Peripheral coldness [Unknown]
  - Dyskinesia [Recovered/Resolved]
  - Paresis [Recovered/Resolved]
  - Body temperature increased [Recovering/Resolving]

NARRATIVE: CASE EVENT DATE: 20241024
